FAERS Safety Report 24027723 (Version 1)
Quarter: 2024Q2

REPORT INFORMATION
  Report Type: Spontaneous
  Country: NL (occurrence: NL)
  Receive Date: 20240628
  Receipt Date: 20240628
  Transmission Date: 20240715
  Serious: Yes (Other)
  Sender: FDA-Public Use
  Company Number: NL-AUROBINDO-AUR-APL-2024-022498

PATIENT
  Sex: Female

DRUGS (9)
  1. CLOZAPINE [Suspect]
     Active Substance: CLOZAPINE
     Indication: Parkinson^s disease
     Dosage: INCREASED 18.75 MG FOR NIGHT
     Route: 065
  2. CARBIDOPA\LEVODOPA [Suspect]
     Active Substance: CARBIDOPA\LEVODOPA
     Indication: Parkinson^s disease
     Dosage: LD: 0.60ML BIR: 0.72ML HIR: 0.72ML LIR: 0.42ML ED: 0.30ML, REMAINS AT 24 HOURS
     Route: 058
     Dates: start: 20240409
  3. CARBIDOPA\LEVODOPA [Suspect]
     Active Substance: CARBIDOPA\LEVODOPA
     Dosage: LD: 0.60ML BIR: 0.63ML HIR: 0.63ML LIR: 0.36ML ED: 0.15ML, REMAINS AT 24 HOURS
     Route: 058
     Dates: start: 20240329
  4. CARBIDOPA\LEVODOPA [Suspect]
     Active Substance: CARBIDOPA\LEVODOPA
     Dosage: LIR: 0.33ML, REMAINS AT 24 HOURS
     Route: 058
     Dates: start: 20240327
  5. CARBIDOPA\LEVODOPA [Suspect]
     Active Substance: CARBIDOPA\LEVODOPA
     Dosage: LD: 0.60ML BIR: 0.69ML HIR: 0.69ML LIR: 0.42ML ED: 0.25ML, GOES TO 24 HOURS
     Route: 058
     Dates: start: 20240404
  6. CARBIDOPA\LEVODOPA [Suspect]
     Active Substance: CARBIDOPA\LEVODOPA
     Dosage: BIR: 0.60ML LIR: 0.30ML ED: 0.10ML, REMAINS AT 24 HOURS
     Route: 058
     Dates: start: 20240326
  7. CARBIDOPA\LEVODOPA [Suspect]
     Active Substance: CARBIDOPA\LEVODOPA
     Dosage: LD: 0.60ML BIR: 0.60ML HIR: 0.60ML LIR: 0.40ML ED: 0.10ML, GOES TO 24 HOURS
     Route: 058
     Dates: start: 20240325
  8. CARBIDOPA\LEVODOPA [Suspect]
     Active Substance: CARBIDOPA\LEVODOPA
     Dosage: REMAINS AT 16 HOURS
     Route: 058
     Dates: start: 20240403
  9. ROPINIROLE [Concomitant]
     Active Substance: ROPINIROLE
     Indication: Product used for unknown indication
     Dosage: 8 MILLIGRAM, ONCE A DAY (INCREASED TO 12 MG IN THE MORNING, ONCE A DAY)
     Route: 065

REACTIONS (33)
  - Hallucination [Recovering/Resolving]
  - Deep brain stimulation [Not Recovered/Not Resolved]
  - Unevaluable event [Not Recovered/Not Resolved]
  - Withdrawal syndrome [Not Recovered/Not Resolved]
  - Vitreous floaters [Not Recovered/Not Resolved]
  - Vision blurred [Not Recovered/Not Resolved]
  - Emotional distress [Not Recovered/Not Resolved]
  - Mood altered [Not Recovered/Not Resolved]
  - Altered visual depth perception [Not Recovered/Not Resolved]
  - Weight increased [Not Recovered/Not Resolved]
  - Feeling abnormal [Not Recovered/Not Resolved]
  - Motor dysfunction [Recovering/Resolving]
  - Hyperkinesia [Not Recovered/Not Resolved]
  - Stress [Not Recovered/Not Resolved]
  - Dyskinesia [Unknown]
  - Dysarthria [Not Recovered/Not Resolved]
  - Gait disturbance [Recovering/Resolving]
  - On and off phenomenon [Not Recovered/Not Resolved]
  - Freezing phenomenon [Not Recovered/Not Resolved]
  - Incorrect product administration duration [Unknown]
  - Extra dose administered [Unknown]
  - Speech disorder [Not Recovered/Not Resolved]
  - Off label use [Not Recovered/Not Resolved]
  - Loss of personal independence in daily activities [Not Recovered/Not Resolved]
  - Sensitive skin [Not Recovered/Not Resolved]
  - Tremor [Not Recovered/Not Resolved]
  - Wheelchair user [Not Recovered/Not Resolved]
  - Tension [Not Recovered/Not Resolved]
  - Therapeutic product effect delayed [Not Recovered/Not Resolved]
  - Breast cancer [Unknown]
  - Dystonia [Not Recovered/Not Resolved]
  - Incorrect dose administered [Unknown]
  - Walking aid user [Not Recovered/Not Resolved]

NARRATIVE: CASE EVENT DATE: 20240101
